FAERS Safety Report 9932673 (Version 1)
Quarter: 2014Q1

REPORT INFORMATION
  Report Type: Spontaneous
  Country: US (occurrence: US)
  Receive Date: 20140228
  Receipt Date: 20140228
  Transmission Date: 20141002
  Serious: No
  Sender: FDA-Public Use
  Company Number: US-GLAXOSMITHKLINE-A1025060A

PATIENT
  Age: 68 Year
  Sex: Female

DRUGS (6)
  1. LAMICTAL [Suspect]
     Indication: BIPOLAR DISORDER
     Dosage: 250MG PER DAY
     Route: 048
     Dates: start: 2010
  2. LITHIUM [Concomitant]
  3. SYNTHROID [Concomitant]
  4. HUMALOG INSULIN [Concomitant]
  5. INSULIN LANTUS [Concomitant]
  6. Z PACK [Concomitant]

REACTIONS (5)
  - Nausea [Recovering/Resolving]
  - Dizziness [Unknown]
  - Fall [Unknown]
  - Contusion [Unknown]
  - Bronchitis [Unknown]
